FAERS Safety Report 23451355 (Version 1)
Quarter: 2024Q1

REPORT INFORMATION
  Report Type: Spontaneous
  Country: JP (occurrence: JP)
  Receive Date: 20240129
  Receipt Date: 20240129
  Transmission Date: 20240410
  Serious: Yes (Other)
  Sender: FDA-Public Use
  Company Number: JP-PFIZER INC-202400023544

PATIENT
  Age: 37 Year
  Sex: Female

DRUGS (1)
  1. LORLATINIB [Suspect]
     Active Substance: LORLATINIB
     Dosage: UNK, TREATMENT LINE 4
     Route: 048

REACTIONS (2)
  - Hallucination, auditory [Recovering/Resolving]
  - Nightmare [Recovering/Resolving]
